FAERS Safety Report 5480001-5 (Version None)
Quarter: 2007Q4

REPORT INFORMATION
  Report Type: 
  Country: None (occurrence: None)
  Receive Date: 20071008
  Receipt Date: 20070926
  Transmission Date: 20080405
  Serious: Yes (Other)
  Sender: FDA-Public Use
  Company Number: JP-PFIZER INC-2007081461

PATIENT
  Age: 44 Year
  Sex: Male

DRUGS (2)
  1. SOLU-MEDROL [Suspect]
     Indication: GLOMERULONEPHRITIS PROLIFERATIVE
     Dosage: DAILY DOSE:500MG
  2. PREDNISOLONE [Concomitant]

REACTIONS (1)
  - LIVER DISORDER [None]
